FAERS Safety Report 17296498 (Version 1)
Quarter: 2020Q1

REPORT INFORMATION
  Report Type: Spontaneous
  Country: US (occurrence: US)
  Receive Date: 20200121
  Receipt Date: 20200121
  Transmission Date: 20200409
  Serious: Yes (Other)
  Sender: FDA-Public Use
  Company Number: US-BAUSCH-BL-2020-001006

PATIENT
  Age: 8 Year
  Sex: Male

DRUGS (5)
  1. CROMOLYN [Concomitant]
     Active Substance: CROMOLYN
     Indication: VERNAL KERATOCONJUNCTIVITIS
  2. LOTEPREDNOL [Suspect]
     Active Substance: LOTEPREDNOL
     Dosage: IN EACH EYE
     Route: 061
  3. LOTEPREDNOL [Suspect]
     Active Substance: LOTEPREDNOL
     Indication: VERNAL KERATOCONJUNCTIVITIS
     Dosage: ON AND OFF IN EACH EYE
     Route: 061
  4. TIMOLOL. [Concomitant]
     Active Substance: TIMOLOL
     Indication: VERNAL KERATOCONJUNCTIVITIS
  5. CYCLOSPORINE. [Concomitant]
     Active Substance: CYCLOSPORINE
     Indication: VERNAL KERATOCONJUNCTIVITIS

REACTIONS (1)
  - Glaucoma [Recovered/Resolved]
